FAERS Safety Report 7379041-0 (Version None)
Quarter: 2011Q1

REPORT INFORMATION
  Report Type: 
  Country: None (occurrence: None)
  Receive Date: 20110328
  Receipt Date: 20110315
  Transmission Date: 20110831
  Serious: Yes (Hospitalization)
  Sender: FDA-Public Use
  Company Number: US-CELGENEUS-163-21880-10121051

PATIENT
  Age: 61 Year
  Sex: Male
  Weight: 92 kg

DRUGS (13)
  1. EPOETIN ALFA [Suspect]
     Dosage: 60000 UNITS
     Route: 058
     Dates: start: 20101102, end: 20101202
  2. DEFERASIROX [Concomitant]
     Route: 065
  3. REVLIMID [Suspect]
     Dosage: 10 MILLIGRAM
     Route: 048
     Dates: start: 20100405
  4. CARISOPRODOL [Concomitant]
     Route: 065
  5. GLUCOSAMINE [Concomitant]
     Route: 065
  6. MAGNESIUM CHLORIDE [Concomitant]
     Route: 065
  7. EPOETIN ALFA [Suspect]
     Dosage: 60000 UNITS
     Route: 058
     Dates: start: 20100404
  8. RED BLOOD CELLS [Concomitant]
     Dosage: 2 UNITS
     Route: 051
     Dates: start: 20101202, end: 20101202
  9. ASPIRIN [Concomitant]
     Route: 065
  10. OMEPRAZOLE [Concomitant]
     Route: 065
  11. REVLIMID [Suspect]
     Dosage: 10 MILLIGRAM
     Route: 048
     Dates: start: 20100101, end: 20101014
  12. OXYCODONE HCL [Concomitant]
     Route: 065
  13. MULTI-VITAMIN [Concomitant]
     Route: 065

REACTIONS (11)
  - PLATELET COUNT DECREASED [None]
  - NEUTROPENIC COLITIS [None]
  - ULCER HAEMORRHAGE [None]
  - SEPSIS [None]
  - VISCERAL ARTERIAL ISCHAEMIA [None]
  - RECTAL ULCER [None]
  - CELLULITIS [None]
  - HAEMOGLOBIN DECREASED [None]
  - HYPOPHOSPHATAEMIA [None]
  - WHITE BLOOD CELL COUNT DECREASED [None]
  - GASTROINTESTINAL NECROSIS [None]
